FAERS Safety Report 9381560 (Version 3)
Quarter: 2013Q4

REPORT INFORMATION
  Report Type: Spontaneous
  Country: IT (occurrence: IT)
  Receive Date: 20130703
  Receipt Date: 20131016
  Transmission Date: 20140711
  Serious: Yes (Hospitalization)
  Sender: FDA-Public Use
  Company Number: IT-JNJFOC-20130619333

PATIENT
  Age: 77 Year
  Sex: Female

DRUGS (9)
  1. PALEXIA [Suspect]
     Indication: PAIN
     Route: 048
     Dates: start: 20130611, end: 20130611
  2. LASIX [Suspect]
     Indication: PRODUCT USED FOR UNKNOWN INDICATION
     Route: 065
  3. MOTILIUM [Concomitant]
     Indication: PRODUCT USED FOR UNKNOWN INDICATION
     Route: 065
  4. CARVEDILOL [Concomitant]
     Indication: HYPERTENSION
     Route: 065
  5. ELOPRAM [Concomitant]
     Indication: PRODUCT USED FOR UNKNOWN INDICATION
     Route: 065
  6. APIDRA [Concomitant]
     Indication: DIABETES MELLITUS
     Route: 065
  7. LANTUS [Concomitant]
     Indication: PRODUCT USED FOR UNKNOWN INDICATION
     Route: 065
  8. SINTROM [Concomitant]
     Indication: MITRAL VALVE REPLACEMENT
     Route: 065
  9. ESOMEPRAZOLE [Concomitant]
     Indication: PRODUCT USED FOR UNKNOWN INDICATION
     Route: 065

REACTIONS (3)
  - Apnoeic attack [Recovering/Resolving]
  - Oxygen saturation decreased [Recovering/Resolving]
  - Sopor [Recovering/Resolving]
